FAERS Safety Report 6861789-5 (Version None)
Quarter: 2010Q3

REPORT INFORMATION
  Report Type: 
  Country: None (occurrence: None)
  Receive Date: 20100721
  Receipt Date: 20100713
  Transmission Date: 20110219
  Serious: No
  Sender: FDA-Public Use
  Company Number: US-BIOGENIDEC-2010BI024228

PATIENT
  Age: 37 Year
  Sex: Female

DRUGS (1)
  1. TYSABRI [Suspect]
     Indication: MULTIPLE SCLEROSIS
     Route: 042
     Dates: start: 20091102

REACTIONS (8)
  - BALANCE DISORDER [None]
  - BLADDER DISORDER [None]
  - DIZZINESS [None]
  - FATIGUE [None]
  - MULTIPLE SCLEROSIS [None]
  - SPEECH DISORDER [None]
  - TREMOR [None]
  - VERTIGO [None]
